FAERS Safety Report 4621487-5 (Version None)
Quarter: 2005Q1

REPORT INFORMATION
  Report Type: 
  Country: None (occurrence: None)
  Receive Date: 20050328
  Receipt Date: 20050314
  Transmission Date: 20050727
  Serious: Yes (Disabling)
  Sender: FDA-Public Use
  Company Number: WAES 0503USA03101

PATIENT
  Age: 64 Year
  Sex: Female

DRUGS (3)
  1. SINGULAIR [Suspect]
     Indication: ASTHMA
     Dosage: 10 MG/DAILY
     Route: 048
     Dates: start: 20040413, end: 20040823
  2. QVAR 40 [Concomitant]
  3. UNIPHYL [Concomitant]

REACTIONS (1)
  - BLOOD LACTATE DEHYDROGENASE INCREASED [None]
